FAERS Safety Report 9597154 (Version 1)
Quarter: 2013Q4

REPORT INFORMATION
  Report Type: Spontaneous
  Country: US (occurrence: US)
  Receive Date: 20131004
  Receipt Date: 20131004
  Transmission Date: 20140711
  Serious: Yes (Hospitalization, Other)
  Sender: FDA-Public Use
  Company Number: US-RB-059012-13

PATIENT
  Age: 30 Year
  Sex: Male

DRUGS (2)
  1. SUBOXONE TABLET [Suspect]
     Indication: DRUG DEPENDENCE
     Dosage: DOSING DETAILS UNKNOWN
     Route: 060
     Dates: start: 2012, end: 201301
  2. SUBOXONE FILM [Suspect]
     Indication: DRUG DEPENDENCE
     Dosage: SUBOXONE FIM; CUTTING THE FILM
     Route: 060
     Dates: start: 201301, end: 201308

REACTIONS (5)
  - Spinal fracture [Recovered/Resolved]
  - Wrong technique in drug usage process [Recovered/Resolved]
  - Impaired driving ability [Recovered/Resolved]
  - Road traffic accident [Recovered/Resolved]
  - Sciatic nerve injury [Recovered/Resolved]
